FAERS Safety Report 8020390-0 (Version None)
Quarter: 2012Q1

REPORT INFORMATION
  Report Type: 
  Country: None (occurrence: None)
  Receive Date: 20120103
  Receipt Date: 20111223
  Transmission Date: 20120608
  Serious: Yes (Life-Threatening, Hospitalization, Other)
  Sender: FDA-Public Use
  Company Number: US-BAXTER-2011BH032396

PATIENT
  Age: 43 Year
  Sex: Female
  Weight: 129 kg

DRUGS (9)
  1. DOBUTAMINE HYDROCHLORIDE [Suspect]
     Indication: CARDIAC STRESS TEST
     Route: 042
     Dates: start: 20111007, end: 20111007
  2. ADVAIR DISKUS 100/50 [Concomitant]
     Indication: PRODUCT USED FOR UNKNOWN INDICATION
     Route: 065
  3. SPIRIVA [Concomitant]
     Indication: PRODUCT USED FOR UNKNOWN INDICATION
     Route: 065
  4. ASPIRIN [Concomitant]
     Indication: PRODUCT USED FOR UNKNOWN INDICATION
     Route: 065
  5. DOBUTAMINE HYDROCHLORIDE [Suspect]
     Indication: OFF LABEL USE
     Route: 042
     Dates: start: 20111007, end: 20111007
  6. PRAZOSIN HCL [Concomitant]
     Indication: PRODUCT USED FOR UNKNOWN INDICATION
     Route: 065
  7. PAROXETINE [Concomitant]
     Indication: PRODUCT USED FOR UNKNOWN INDICATION
     Route: 065
  8. ALBUTEROL [Concomitant]
     Indication: PRODUCT USED FOR UNKNOWN INDICATION
     Route: 065
  9. TOPIRAMATE [Concomitant]
     Indication: PRODUCT USED FOR UNKNOWN INDICATION
     Route: 048

REACTIONS (2)
  - UNRESPONSIVE TO STIMULI [None]
  - CONVULSION [None]
